FAERS Safety Report 8447063-4 (Version None)
Quarter: 2012Q2

REPORT INFORMATION
  Report Type: 
  Country: None (occurrence: None)
  Receive Date: 20120619
  Receipt Date: 20120614
  Transmission Date: 20120825
  Serious: Yes (Hospitalization, Disabling)
  Sender: FDA-Public Use
  Company Number: PHHO2011RU17633

PATIENT
  Sex: Male
  Weight: 76.4 kg

DRUGS (9)
  1. VALSARTAN [Suspect]
     Indication: CARDIAC FAILURE CHRONIC
     Dosage: CODE NOT BROKEN
     Route: 048
     Dates: start: 20110913
  2. ASPIRIN [Concomitant]
     Indication: CARDIOVASCULAR DISORDER
     Dosage: 100 MG, UNK
     Route: 048
     Dates: start: 20100101, end: 20111009
  3. MONOCINQUE [Concomitant]
     Indication: ANGINA PECTORIS
     Dosage: 40 MG, UNK
     Route: 048
     Dates: start: 20100101, end: 20111009
  4. BLINDED NO TREATMENT RECEIVED [Suspect]
     Indication: CARDIAC FAILURE CHRONIC
     Dosage: CODE NOT BROKEN
     Route: 048
     Dates: start: 20110913
  5. FUROSEMIDE [Suspect]
     Indication: CARDIAC FAILURE CHRONIC
     Dosage: 40 MG, UNK
     Route: 048
     Dates: start: 20100101, end: 20111009
  6. CARDEPINE [Concomitant]
     Indication: HYPERTENSION
     Dosage: 40 MG, BID
     Route: 048
     Dates: start: 20100101, end: 20111009
  7. CONCOR [Concomitant]
     Indication: MYOCARDIAL ISCHAEMIA
     Dosage: 5 MG, UNK
     Route: 048
     Dates: start: 20100101, end: 20111009
  8. DIABETON [Concomitant]
     Indication: DIABETES MELLITUS
     Dosage: 60 MG, UNK
     Route: 048
     Dates: start: 20100101, end: 20111009
  9. ENALAPRIL MALEATE [Suspect]
     Indication: CARDIAC FAILURE CHRONIC
     Dosage: CODE NOT BROKEN
     Route: 048
     Dates: start: 20110913

REACTIONS (2)
  - ISCHAEMIC STROKE [None]
  - CONCOMITANT DISEASE PROGRESSION [None]
